FAERS Safety Report 9638672 (Version 1)
Quarter: 2013Q4

REPORT INFORMATION
  Report Type: Spontaneous
  Country: US (occurrence: US)
  Receive Date: 20131022
  Receipt Date: 20131022
  Transmission Date: 20140711
  Serious: Yes (Hospitalization)
  Sender: FDA-Public Use
  Company Number: US-TEVA-439142USA

PATIENT
  Age: 61 Year
  Sex: Male

DRUGS (9)
  1. TRISENOX [Suspect]
     Indication: ACUTE PROMYELOCYTIC LEUKAEMIA
     Dosage: INDUCTION:0.15 MG/KG/DAY 5 DAYS/WK FROM DAY 10-CR
     Route: 042
     Dates: start: 20121027
  2. TRISENOX [Suspect]
     Dosage: REGIMEN 2
     Route: 042
  3. GEMTUZUMAB OZOGAMICIN [Suspect]
     Indication: ACUTE PROMYELOCYTIC LEUKAEMIA
     Dosage: INDUCTION: 9 MG/M2 DAY 1 ONLY
     Route: 042
     Dates: start: 20121027
  4. GEMTUZUMAB OZOGAMICIN [Suspect]
     Dosage: REGIMEN 2
     Route: 042
  5. ATRA [Suspect]
     Indication: ACUTE PROMYELOCYTIC LEUKAEMIA
     Dosage: INDUCTION: 45 MG/M2/DAY EVERY 12 HOURS DAY 1 TO CR
     Route: 048
     Dates: start: 20121027
  6. ATRA [Suspect]
     Dosage: REGIMEN 2
     Route: 048
  7. DAUNORUBICIN [Suspect]
     Indication: ACUTE PROMYELOCYTIC LEUKAEMIA
     Dosage: CONSOLIDATION:CYCLES 3-4 50 MG/M2/DAY, DAYS 1-3
     Route: 042
  8. FAMCICLOVIR [Concomitant]
  9. FLUCONAZOLE [Concomitant]

REACTIONS (1)
  - Febrile neutropenia [Recovered/Resolved]
